FAERS Safety Report 17407974 (Version 1)
Quarter: 2020Q1

REPORT INFORMATION
  Report Type: Spontaneous
  Country: US (occurrence: US)
  Receive Date: 20200212
  Receipt Date: 20200212
  Transmission Date: 20200409
  Serious: No
  Sender: FDA-Public Use
  Company Number: US-PFIZER INC-2020059657

PATIENT

DRUGS (2)
  1. CAMPTOSAR [Suspect]
     Active Substance: IRINOTECAN HYDROCHLORIDE
  2. OXALIPLATIN. [Suspect]
     Active Substance: OXALIPLATIN

REACTIONS (1)
  - Toxicity to various agents [Unknown]
